FAERS Safety Report 25647990 (Version 2)
Quarter: 2025Q3

REPORT INFORMATION
  Report Type: Report from Study
  Country: US (occurrence: US)
  Receive Date: 20250806
  Receipt Date: 20250820
  Transmission Date: 20251020
  Serious: No
  Sender: SUNOVION
  Company Number: US-SUMITOMO PHARMA SWITZERLAND GMBH-2025SPA009821

PATIENT
  Age: 75 Year
  Sex: Male

DRUGS (14)
  1. ORGOVYX [Suspect]
     Active Substance: RELUGOLIX
     Indication: Prostate cancer
     Route: 048
  2. ORGOVYX [Suspect]
     Active Substance: RELUGOLIX
     Route: 048
  3. TYLENOL [Concomitant]
     Active Substance: ACETAMINOPHEN
  4. PROAIR HFA [Concomitant]
     Active Substance: ALBUTEROL SULFATE
  5. ALFUZOSIN HYDROCHLORIDE [Concomitant]
     Active Substance: ALFUZOSIN HYDROCHLORIDE
  6. ATORVASTATIN [Concomitant]
     Active Substance: ATORVASTATIN
  7. COMBIGAN [Concomitant]
     Active Substance: BRIMONIDINE TARTRATE\TIMOLOL MALEATE
  8. DONEPEZIL [Concomitant]
     Active Substance: DONEPEZIL
  9. DORZOLAMIDE [Concomitant]
     Active Substance: DORZOLAMIDE
  10. FUROSEMIDE [Concomitant]
     Active Substance: FUROSEMIDE
  11. LOPERAMIDE [Concomitant]
     Active Substance: LOPERAMIDE
  12. MEMANTINE [Concomitant]
     Active Substance: MEMANTINE
  13. TAMSULOSIN [Concomitant]
     Active Substance: TAMSULOSIN
  14. ASPIRIN [Concomitant]
     Active Substance: ASPIRIN

REACTIONS (7)
  - Infection [Recovered/Resolved]
  - Vomiting [Recovered/Resolved]
  - Lethargy [Recovered/Resolved]
  - Contusion [Unknown]
  - Vascular rupture [Unknown]
  - Blood glucose increased [Unknown]
  - Diarrhoea [Unknown]
